FAERS Safety Report 6489967-8 (Version None)
Quarter: 2009Q4

REPORT INFORMATION
  Report Type: 
  Country: None (occurrence: None)
  Receive Date: 20091211
  Receipt Date: 20091130
  Transmission Date: 20100525
  Serious: Yes (Hospitalization, Other)
  Sender: FDA-Public Use
  Company Number: PHHY2009RS49925

PATIENT
  Age: 44 Year
  Sex: Male

DRUGS (4)
  1. LEPONEX [Suspect]
     Indication: SCHIZOAFFECTIVE DISORDER
     Dosage: 300 MG, DAILY
  2. LEPONEX [Suspect]
     Dosage: 150 MG, DAILY
     Dates: start: 20090501
  3. VALPROIC ACID [Concomitant]
  4. HALDOL [Concomitant]
     Route: 030

REACTIONS (3)
  - CONFUSIONAL STATE [None]
  - HYPOTONIA [None]
  - ORTHOSTATIC HYPOTENSION [None]
